FAERS Safety Report 5771699-2 (Version None)
Quarter: 2008Q2

REPORT INFORMATION
  Report Type: 
  Country: None (occurrence: None)
  Receive Date: 20080613
  Receipt Date: 20080606
  Transmission Date: 20081010
  Serious: Yes (Other)
  Sender: FDA-Public Use
  Company Number: US-BAYER-200817131NA

PATIENT
  Age: 50 Year
  Sex: Female
  Weight: 64 kg

DRUGS (3)
  1. AVELOX [Suspect]
     Indication: BRONCHITIS
     Dosage: TOTAL DAILY DOSE: 400 MG  UNIT DOSE: 400 MG
     Route: 048
     Dates: start: 20080205, end: 20080205
  2. VERAPAMIL [Concomitant]
     Dosage: TOTAL DAILY DOSE: 180 MG  UNIT DOSE: 180 MG
  3. DIAZIDE [Concomitant]
     Dosage: TOTAL DAILY DOSE: 1 DF  UNIT DOSE: 1 DF

REACTIONS (3)
  - ANAPHYLACTIC REACTION [None]
  - PRURITUS [None]
  - URTICARIA [None]
